FAERS Safety Report 9952246 (Version 1)
Quarter: 2014Q1

REPORT INFORMATION
  Report Type: Report from Study
  Country: BR (occurrence: BR)
  Receive Date: 20140304
  Receipt Date: 20140304
  Transmission Date: 20141002
  Serious: Yes (Other)
  Sender: FDA-Public Use
  Company Number: PHHY2014BR025595

PATIENT
  Sex: Male

DRUGS (3)
  1. EXELON [Suspect]
     Indication: DEMENTIA ALZHEIMER^S TYPE
     Dosage: UNK UKN, UNK
  2. EXELON [Suspect]
     Indication: PARKINSON^S DISEASE
  3. GARDENAL//PHENOBARBITAL [Concomitant]
     Indication: EPILEPSY
     Dosage: UNK UKN, UNK

REACTIONS (3)
  - Epilepsy [Unknown]
  - Persecutory delusion [Not Recovered/Not Resolved]
  - Confusional state [Unknown]
